FAERS Safety Report 7729390-9 (Version None)
Quarter: 2011Q3

REPORT INFORMATION
  Report Type: 
  Country: None (occurrence: None)
  Receive Date: 20110906
  Receipt Date: 20110829
  Transmission Date: 20111222
  Serious: Yes (Hospitalization, Other)
  Sender: FDA-Public Use
  Company Number: JP-JNJFOC-20090607486

PATIENT
  Sex: Female
  Weight: 49 kg

DRUGS (20)
  1. DOXORUBICIN HCL [Suspect]
     Dosage: 70 MG TOTAL - CYCLE 1
     Route: 042
     Dates: start: 20090527, end: 20090527
  2. AZUNOL [Concomitant]
     Indication: STOMATITIS
     Route: 002
  3. DOXORUBICIN HCL [Suspect]
     Dosage: CYCLE 5
     Route: 042
     Dates: start: 20100519, end: 20100519
  4. DOXORUBICIN HCL [Suspect]
     Dosage: CYCLE 5
     Route: 042
     Dates: start: 20091007, end: 20091007
  5. DOXORUBICIN HCL [Suspect]
     Dosage: CYCLE 5
     Route: 042
     Dates: start: 20100421, end: 20100421
  6. DOXORUBICIN HCL [Suspect]
     Route: 042
     Dates: start: 20100630, end: 20100630
  7. DOXORUBICIN HCL [Suspect]
     Route: 042
     Dates: start: 20100728, end: 20100728
  8. DOXORUBICIN HCL [Suspect]
     Dosage: CYCLE 5
     Route: 042
     Dates: start: 20100324, end: 20100324
  9. DOXORUBICIN HCL [Suspect]
     Indication: OVARIAN CANCER RECURRENT
     Dosage: CYCLE 5
     Route: 042
     Dates: start: 20100218, end: 20100218
  10. DOXORUBICIN HCL [Suspect]
     Dosage: CYCLE 4
     Route: 042
     Dates: start: 20090902, end: 20090902
  11. DOXORUBICIN HCL [Suspect]
     Dosage: CYCLE 5
     Route: 042
     Dates: start: 20100127, end: 20100127
  12. RINDERON-VG [Concomitant]
     Indication: PALMAR-PLANTAR ERYTHRODYSAESTHESIA SYNDROME
     Dosage: 2-3 TIMES A DAY
     Route: 061
  13. FLAVITAN [Concomitant]
     Indication: STOMATITIS
     Route: 048
  14. AMOXICILLIN [Concomitant]
     Indication: PRODUCT USED FOR UNKNOWN INDICATION
     Route: 048
     Dates: start: 20100810, end: 20100816
  15. DOXORUBICIN HCL [Suspect]
     Dosage: CYCLE 2
     Route: 042
     Dates: start: 20090701, end: 20090701
  16. DOXORUBICIN HCL [Suspect]
     Route: 042
     Dates: start: 20100824, end: 20100824
  17. DOXORUBICIN HCL [Suspect]
     Dosage: CYCLE 3
     Route: 042
     Dates: start: 20090729, end: 20090729
  18. JUZEN-TAIHO-TO [Concomitant]
     Indication: PROPHYLAXIS
     Route: 048
     Dates: start: 20081009
  19. KENALOG [Concomitant]
     Indication: STOMATITIS
     Dosage: 2-3 TIMES A DAY
     Route: 049
  20. PYDOXAL [Concomitant]
     Indication: STOMATITIS
     Route: 048

REACTIONS (4)
  - PYELONEPHRITIS [None]
  - STAPHYLOCOCCAL INFECTION [None]
  - PLATELET COUNT DECREASED [None]
  - FEBRILE NEUTROPENIA [None]
